FAERS Safety Report 7719395-6 (Version None)
Quarter: 2011Q3

REPORT INFORMATION
  Report Type: 
  Country: None (occurrence: None)
  Receive Date: 20110830
  Receipt Date: 20110813
  Transmission Date: 20111222
  Serious: Yes (Hospitalization)
  Sender: FDA-Public Use
  Company Number: DE-WATSON-2011-12602

PATIENT
  Age: 2 Year
  Sex: Female

DRUGS (3)
  1. AMIODARONE HCL [Suspect]
     Indication: VENTRICULAR ARRHYTHMIA
     Dosage: UNK
  2. TACROLIMUS [Suspect]
     Indication: HEART TRANSPLANT
     Dosage: 0.8 MG EVERY 12 HOURS
     Route: 048
     Dates: start: 20080501
  3. SIROLIMUS [Suspect]
     Indication: HEART TRANSPLANT
     Dosage: 1-2  MG DAILY
     Route: 048

REACTIONS (2)
  - DRUG INTERACTION [None]
  - DRUG LEVEL INCREASED [None]
